FAERS Safety Report 20037849 (Version 1)
Quarter: 2021Q4

REPORT INFORMATION
  Report Type: Other
  Country: IT (occurrence: None)
  Receive Date: 20211105
  Receipt Date: 20211105
  Transmission Date: 20220304
  Serious: Yes (Other)
  Sender: FDA-Public Use
  Company Number: IT-ROCHE-2949987

PATIENT
  Age: 15 Year
  Sex: Female

DRUGS (2)
  1. MYCOPHENOLATE MOFETIL [Suspect]
     Active Substance: MYCOPHENOLATE MOFETIL
     Indication: Glomerulonephropathy
     Route: 065
  2. RUXOLITINIB [Suspect]
     Active Substance: RUXOLITINIB
     Indication: Glomerulonephropathy
     Route: 065

REACTIONS (3)
  - Disease progression [Recovering/Resolving]
  - Renal failure [Recovering/Resolving]
  - Treatment failure [Unknown]
